FAERS Safety Report 8379979-1 (Version None)
Quarter: 2012Q2

REPORT INFORMATION
  Report Type: 
  Country: None (occurrence: None)
  Receive Date: 20120523
  Receipt Date: 20120509
  Transmission Date: 20120825
  Serious: Yes (Other)
  Sender: FDA-Public Use
  Company Number: JP-ELI_LILLY_AND_COMPANY-JP201205000028

PATIENT
  Sex: Female

DRUGS (6)
  1. BAZEDOXIFENE ACETATE [Concomitant]
     Dosage: UNK
  2. GLIMEPIRIDE [Concomitant]
     Indication: DIABETES MELLITUS
     Dosage: 3 MG, QD
     Route: 048
     Dates: start: 20100509
  3. CYMBALTA [Suspect]
     Indication: DEPRESSION
     Dosage: 20 MG, QD
     Route: 048
     Dates: start: 20120417, end: 20120424
  4. ENALAPRIL MALEATE [Concomitant]
     Dosage: UNK
  5. NICORANDIL [Concomitant]
     Dosage: UNK
  6. OMEPRAZOLE [Concomitant]
     Indication: GASTROOESOPHAGEAL REFLUX DISEASE
     Dosage: 20 MG, QD
     Route: 048
     Dates: start: 20091105

REACTIONS (1)
  - DERMATITIS [None]
